FAERS Safety Report 4797304-X (Version None)
Quarter: 2005Q4

REPORT INFORMATION
  Report Type: 
  Country: None (occurrence: None)
  Receive Date: 20051013
  Receipt Date: 20050923
  Transmission Date: 20060501
  Serious: Yes (Other)
  Sender: FDA-Public Use
  Company Number: 2005019122

PATIENT
  Age: 39 Year
  Sex: Female
  Weight: 70 kg

DRUGS (1)
  1. QUILONUM RETARD [Suspect]
     Dosage: 20TAB SINGLE DOSE
     Route: 048
     Dates: start: 20050923, end: 20050923

REACTIONS (7)
  - BRADYCARDIA [None]
  - DIARRHOEA [None]
  - FATIGUE [None]
  - HEADACHE [None]
  - INTENTIONAL DRUG MISUSE [None]
  - NAUSEA [None]
  - SUICIDE ATTEMPT [None]
